FAERS Safety Report 24067766 (Version 1)
Quarter: 2024Q3

REPORT INFORMATION
  Report Type: Spontaneous
  Country: CN (occurrence: CN)
  Receive Date: 20240710
  Receipt Date: 20240710
  Transmission Date: 20241017
  Serious: Yes (Hospitalization)
  Sender: BEIGENE
  Company Number: CN-BEIGENE-BGN-2024-010365

PATIENT

DRUGS (4)
  1. TISLELIZUMAB [Suspect]
     Active Substance: TISLELIZUMAB
     Indication: Squamous cell carcinoma
     Dosage: UNK MILLIGRAM
  2. TISLELIZUMAB [Suspect]
     Active Substance: TISLELIZUMAB
     Dosage: 200 MILLIGRAM
     Route: 041
     Dates: start: 20240614
  3. PACLITAXEL [Concomitant]
     Active Substance: PACLITAXEL
     Indication: Squamous cell carcinoma
     Dosage: 493.8 MILLIGRAM
     Route: 041
     Dates: start: 20240614
  4. CARBOPLATIN [Concomitant]
     Active Substance: CARBOPLATIN
     Indication: Squamous cell carcinoma
     Dosage: UNK

REACTIONS (4)
  - Pruritus [Unknown]
  - Rash [Unknown]
  - Dry skin [Unknown]
  - Skin exfoliation [Unknown]
